FAERS Safety Report 18890000 (Version 1)
Quarter: 2021Q1

REPORT INFORMATION
  Report Type: Spontaneous
  Country: NO (occurrence: NO)
  Receive Date: 20210213
  Receipt Date: 20210213
  Transmission Date: 20210420
  Serious: Yes (Hospitalization)
  Sender: FDA-Public Use
  Company Number: NVSC2021NO029836

PATIENT
  Age: 71 Year
  Sex: Female

DRUGS (4)
  1. NOBLIGAN [Concomitant]
     Active Substance: TRAMADOL HYDROCHLORIDE
     Indication: PRODUCT USED FOR UNKNOWN INDICATION
     Dosage: 100 MG, Q24H (RETARD)
     Route: 048
     Dates: start: 20120531
  2. CALCIGRAN FORTE [Concomitant]
     Active Substance: CALCIUM CARBONATE\CHOLECALCIFEROL
     Indication: OSTEOPOROSIS
     Dosage: 1 DF (CALCIUM CARBONATE 1000 MG AND CHOLECALCIFEROL 800 MG), Q24H (A12AX ? KALSIUM, KOMBINASJONER ME
     Route: 048
     Dates: start: 20200701
  3. ACLASTA [Suspect]
     Active Substance: ZOLEDRONIC ACID
     Indication: OSTEOPOROSIS
     Dosage: 5 MG (M05BA08 ? ZOLEDRONSYRE)
     Route: 042
     Dates: start: 20200826, end: 20200826
  4. NEXIUM [Concomitant]
     Active Substance: ESOMEPRAZOLE MAGNESIUM
     Indication: GASTROOESOPHAGEAL REFLUX DISEASE
     Dosage: 20?40 MG DAILY (A02BC05 ? ESOMEPRAZOL )
     Route: 048
     Dates: start: 20100203

REACTIONS (3)
  - Diplopia [Unknown]
  - Eye pain [Unknown]
  - Eye inflammation [Recovering/Resolving]
